FAERS Safety Report 9246963 (Version 2)
Quarter: 2013Q2

REPORT INFORMATION
  Report Type: Report from Study
  Country: US (occurrence: US)
  Receive Date: 20130422
  Receipt Date: 20130605
  Transmission Date: 20140414
  Serious: Yes (Hospitalization)
  Sender: FDA-Public Use
  Company Number: US-US-EMD SERONO, INC.-7205811

PATIENT
  Sex: Female
  Weight: 81 kg

DRUGS (2)
  1. REBIF [Suspect]
     Indication: MULTIPLE SCLEROSIS
     Route: 058
     Dates: start: 20061201
  2. IBUPROFEN [Concomitant]
     Indication: PREMEDICATION
     Dosage: 3 TABS AS PREMEDICATION AND AGAIN IN THE AM
     Route: 048

REACTIONS (7)
  - Arthritis [Recovering/Resolving]
  - Arthralgia [Recovering/Resolving]
  - Fall [Recovering/Resolving]
  - Weight decreased [Unknown]
  - Muscular weakness [Recovering/Resolving]
  - Pain [Not Recovered/Not Resolved]
  - Influenza like illness [Not Recovered/Not Resolved]
